FAERS Safety Report 17581567 (Version 2)
Quarter: 2020Q1

REPORT INFORMATION
  Report Type: Spontaneous
  Country: CN (occurrence: CN)
  Receive Date: 20200325
  Receipt Date: 20200327
  Transmission Date: 20200409
  Serious: Yes (Life-Threatening)
  Sender: FDA-Public Use
  Company Number: CN-CELGENEUS-CHN-20200308124

PATIENT
  Age: 71 Year
  Sex: Male

DRUGS (3)
  1. LOBAPLATIN [Suspect]
     Active Substance: LOBAPLATIN
     Indication: LUNG NEOPLASM MALIGNANT
     Dosage: 30 MILLIGRAM
     Route: 041
     Dates: start: 20200120, end: 20200121
  2. ABRAXANE [Suspect]
     Active Substance: PACLITAXEL
     Indication: LUNG NEOPLASM MALIGNANT
     Dosage: 200 MILLIGRAM
     Route: 041
     Dates: start: 20200121
  3. ABRAXANE [Suspect]
     Active Substance: PACLITAXEL
     Indication: LUNG NEOPLASM MALIGNANT

REACTIONS (1)
  - Bone marrow failure [Recovering/Resolving]

NARRATIVE: CASE EVENT DATE: 20200123
